FAERS Safety Report 7434936-4 (Version None)
Quarter: 2011Q2

REPORT INFORMATION
  Report Type: 
  Country: None (occurrence: None)
  Receive Date: 20110425
  Receipt Date: 20110415
  Transmission Date: 20111010
  Serious: Yes (Hospitalization)
  Sender: FDA-Public Use
  Company Number: US-ALEXION-A201100133

PATIENT
  Sex: Female

DRUGS (12)
  1. HYDROCODONE [Concomitant]
     Indication: HEADACHE
     Dosage: 500 MG, PRN
     Route: 048
  2. NEULASTA [Concomitant]
     Indication: WHITE BLOOD CELL COUNT DECREASED
     Dosage: 6 MG, Q3WK
     Route: 030
  3. SYMBICORT [Concomitant]
     Indication: ASTHMA
     Dosage: 2 PUFFS, INHALATION
  4. ALBUTEROL [Concomitant]
     Indication: ASTHMA
     Dosage: PUFFER
  5. CYCLOSPORINE [Concomitant]
     Indication: APLASTIC ANAEMIA
     Dosage: 100 MG, BID
     Route: 048
  6. SOLIRIS [Suspect]
     Dosage: 900 MG, Q2W
     Route: 042
  7. SOLIRIS [Suspect]
     Indication: PAROXYSMAL NOCTURNAL HAEMOGLOBINURIA
     Dosage: 600 MG, QWX4
     Route: 042
  8. ALBUTEROL [Concomitant]
     Dosage: NEBULIZER
  9. FOLIC ACID [Concomitant]
     Indication: PAROXYSMAL NOCTURNAL HAEMOGLOBINURIA
     Dosage: 1 MG, QD
     Route: 048
  10. SINGULAIR [Concomitant]
     Indication: ASTHMA
     Dosage: 10 MG, QD
     Route: 048
  11. CLONAZEPAM [Concomitant]
     Indication: NERVOUSNESS
     Dosage: 1 MG, BID
     Route: 048
  12. OMEPRAZOLE [Concomitant]
     Indication: NAUSEA
     Dosage: 20 MG, QD
     Route: 048

REACTIONS (12)
  - CHRONIC OBSTRUCTIVE PULMONARY DISEASE [None]
  - DYSPNOEA [None]
  - CHROMATURIA [None]
  - PALPITATIONS [None]
  - MIGRAINE [None]
  - PAROXYSMAL NOCTURNAL HAEMOGLOBINURIA [None]
  - HAEMOGLOBIN DECREASED [None]
  - CONDITION AGGRAVATED [None]
  - ASTHMA [None]
  - MUSCLE SPASMS [None]
  - PRODUCTIVE COUGH [None]
  - PLATELET COUNT ABNORMAL [None]
